FAERS Safety Report 18249177 (Version 1)
Quarter: 2020Q3

REPORT INFORMATION
  Report Type: Spontaneous
  Country: US (occurrence: US)
  Receive Date: 20200909
  Receipt Date: 20200909
  Transmission Date: 20201103
  Serious: Yes (Life-Threatening, Hospitalization, Disabling, Other)
  Sender: FDA-Public Use
  Company Number: US-PURDUE-USA-2020-0165184

PATIENT
  Age: 24 Year
  Sex: Female

DRUGS (32)
  1. DILAUDID [Suspect]
     Active Substance: HYDROMORPHONE HYDROCHLORIDE
     Dosage: 2 MG, Q4H PRN
     Route: 048
  2. HYDROCODONE BITARTRATE AND ACETAMINOPHEN [Suspect]
     Active Substance: ACETAMINOPHEN\HYDROCODONE BITARTRATE
     Dosage: 5?325 MG, 1 TABLET, Q6H PRN
     Route: 048
  3. TRAMADOL. [Suspect]
     Active Substance: TRAMADOL
     Dosage: 50 MG, TID
     Route: 048
  4. FENTANYL. [Suspect]
     Active Substance: FENTANYL
     Indication: PRODUCT USED FOR UNKNOWN INDICATION
     Dosage: 1 PATCH, Q72H
     Route: 062
  5. BUTRANS [Suspect]
     Active Substance: BUPRENORPHINE
     Indication: PRODUCT USED FOR UNKNOWN INDICATION
     Dosage: UNK
     Route: 062
  6. OXYCODONE HYDROCHLORIDE (SIMILAR TO NDA 22?272) [Suspect]
     Active Substance: OXYCODONE HYDROCHLORIDE
     Indication: PAIN MANAGEMENT
     Dosage: 30 MG, Q6H PRN
     Route: 048
  7. OXYCODONE/ ACETAMINOPHEN TABLETS [Suspect]
     Active Substance: ACETAMINOPHEN\OXYCODONE HYDROCHLORIDE
     Dosage: 3?325 MG
     Route: 048
  8. NORCO [Suspect]
     Active Substance: ACETAMINOPHEN\HYDROCODONE BITARTRATE
     Dosage: 5?325 MG, 1 TABLET, TID
     Route: 048
  9. PERCOCET [Suspect]
     Active Substance: ACETAMINOPHEN\OXYCODONE HYDROCHLORIDE
     Dosage: 5?325 MG, Q6H PRN
     Route: 048
  10. VICODIN [Suspect]
     Active Substance: ACETAMINOPHEN\HYDROCODONE BITARTRATE
     Indication: PRODUCT USED FOR UNKNOWN INDICATION
     Dosage: UNK
     Route: 065
  11. HYDROMORPHONE TABLETS [Suspect]
     Active Substance: HYDROMORPHONE
     Dosage: 2 MG, Q4H PRN
     Route: 048
  12. HYDROCODONE BITARTRATE AND ACETAMINOPHEN [Suspect]
     Active Substance: ACETAMINOPHEN\HYDROCODONE BITARTRATE
     Indication: PAIN MANAGEMENT
     Dosage: 5?325 MG, 1?2 TABLETS, Q6H PRN
     Route: 048
  13. HYDROCODONE BITARTRATE AND ACETAMINOPHEN [Suspect]
     Active Substance: ACETAMINOPHEN\HYDROCODONE BITARTRATE
     Dosage: 5?325 MG, 2 TABLETS, Q6H PRN
     Route: 048
  14. OXYCODONE/ ACETAMINOPHEN TABLETS [Suspect]
     Active Substance: ACETAMINOPHEN\OXYCODONE HYDROCHLORIDE
     Indication: PAIN MANAGEMENT
     Dosage: 7.5 ? 325 MG, 1 TABLET, Q4H PRN
     Route: 048
  15. TRAMADOL. [Suspect]
     Active Substance: TRAMADOL
     Indication: PAIN MANAGEMENT
     Dosage: 50 MG, HS PRN
     Route: 048
  16. PERCOCET [Suspect]
     Active Substance: ACETAMINOPHEN\OXYCODONE HYDROCHLORIDE
     Dosage: 5?325 MG, Q4H PRN
     Route: 048
  17. OXYCODONE HYDROCHLORIDE (SIMILAR TO NDA 22?272) [Suspect]
     Active Substance: OXYCODONE HYDROCHLORIDE
     Dosage: 5 MG, Q4H PRN
     Route: 048
  18. PERCOCET [Suspect]
     Active Substance: ACETAMINOPHEN\OXYCODONE HYDROCHLORIDE
     Dosage: 10?325 MG, 1 TABLET, TID
     Route: 048
  19. PERCOCET [Suspect]
     Active Substance: ACETAMINOPHEN\OXYCODONE HYDROCHLORIDE
     Indication: PAIN MANAGEMENT
     Dosage: 10?325 MG, 1 TABLET Q6H PRN
     Route: 048
  20. OXYCONTIN [Suspect]
     Active Substance: OXYCODONE HYDROCHLORIDE
     Indication: PRODUCT USED FOR UNKNOWN INDICATION
     Dosage: UNK
     Route: 048
  21. BUPRENORPHINE TRANSDERMAL PATCH (SIMILAR TO NDA 21?306) [Suspect]
     Active Substance: BUPRENORPHINE
     Indication: PRODUCT USED FOR UNKNOWN INDICATION
     Dosage: UNK
     Route: 062
  22. HYDROMORPHONE TABLETS [Suspect]
     Active Substance: HYDROMORPHONE
     Indication: PAIN MANAGEMENT
     Dosage: 2 MG, Q8H PRN
     Route: 048
  23. MORPHINE SULFATE (SIMILAR TO NDA 19?516) [Suspect]
     Active Substance: MORPHINE SULFATE
     Indication: PAIN MANAGEMENT
     Dosage: UNK
     Route: 048
  24. HYDROCODONE BITARTRATE AND ACETAMINOPHEN [Suspect]
     Active Substance: ACETAMINOPHEN\HYDROCODONE BITARTRATE
     Dosage: 7.5?325 MG, QID
     Route: 048
  25. MSIR [Suspect]
     Active Substance: MORPHINE SULFATE
     Indication: PRODUCT USED FOR UNKNOWN INDICATION
     Dosage: UNK
     Route: 065
  26. TRAMADOL. [Suspect]
     Active Substance: TRAMADOL
     Dosage: 50 MG, Q6H
     Route: 048
  27. FENTANYL. [Suspect]
     Active Substance: FENTANYL
     Dosage: 12 MCG, UNK
     Route: 065
  28. DILAUDID [Suspect]
     Active Substance: HYDROMORPHONE HYDROCHLORIDE
     Indication: PRODUCT USED FOR UNKNOWN INDICATION
     Dosage: 4 MG, UNK
     Route: 048
  29. HYDROMORPHONE TABLETS [Suspect]
     Active Substance: HYDROMORPHONE
     Dosage: 4 MG, Q6H PRN
     Route: 048
  30. HYDROCODONE BITARTRATE AND ACETAMINOPHEN [Suspect]
     Active Substance: ACETAMINOPHEN\HYDROCODONE BITARTRATE
     Dosage: 5?325 MG, 1 TABLET, TID PRN
     Route: 048
  31. HYDROCODONE BITARTRATE AND ACETAMINOPHEN [Suspect]
     Active Substance: ACETAMINOPHEN\HYDROCODONE BITARTRATE
     Dosage: 5?325 MG, 1 TABLET, Q6H?8H PRN
     Route: 048
  32. NORCO [Suspect]
     Active Substance: ACETAMINOPHEN\HYDROCODONE BITARTRATE
     Indication: PAIN MANAGEMENT
     Dosage: 5?325 MG, 1 TABLET, TID PRN
     Route: 048

REACTIONS (41)
  - Disability [Unknown]
  - Depression [Unknown]
  - Vomiting [Unknown]
  - Psychiatric symptom [Unknown]
  - Feeding disorder [Unknown]
  - Metabolic acidosis [Unknown]
  - Suicide attempt [Unknown]
  - Blood thyroid stimulating hormone decreased [Unknown]
  - Anxiety [Unknown]
  - Impaired gastric emptying [Unknown]
  - Seizure [Unknown]
  - Mental disorder [Unknown]
  - Chest pain [Unknown]
  - Nausea [Unknown]
  - Computerised tomogram abnormal [Unknown]
  - Malnutrition [Unknown]
  - Pain [Unknown]
  - Drug dependence [Unknown]
  - Diabetic ketoacidosis [Unknown]
  - Syncope [Unknown]
  - Mental impairment [Unknown]
  - Abdominal pain [Unknown]
  - Learning disability [Unknown]
  - Emotional distress [Unknown]
  - Irritable bowel syndrome [Unknown]
  - Suicidal ideation [Unknown]
  - Loss of consciousness [Unknown]
  - Pelvic inflammatory disease [Unknown]
  - Adjustment disorder [Unknown]
  - Electrocardiogram abnormal [Unknown]
  - Hyperglycaemia [Unknown]
  - Constipation [Unknown]
  - Systemic inflammatory response syndrome [Unknown]
  - Electrolyte imbalance [Unknown]
  - Haematemesis [Unknown]
  - Dehydration [Unknown]
  - Social avoidant behaviour [Unknown]
  - Gallbladder disorder [Unknown]
  - Memory impairment [Unknown]
  - Aggression [Unknown]
  - Insomnia [Unknown]

NARRATIVE: CASE EVENT DATE: 2013
